FAERS Safety Report 9738280 (Version 1)
Quarter: 2013Q4

REPORT INFORMATION
  Report Type: Spontaneous
  Country: US (occurrence: US)
  Receive Date: 20131208
  Receipt Date: 20131208
  Transmission Date: 20140711
  Serious: No
  Sender: FDA-Public Use
  Company Number: -SAAVPROD-RENA-1001768

PATIENT
  Age: 86 Year
  Sex: Male

DRUGS (2)
  1. SEVELAMER CARBONATE [Suspect]
     Indication: HYPERPHOSPHATAEMIA
     Dosage: 4.8 G, QD (2 TABLETS THREE TIMES A DAY WITH MEAL)
     Route: 065
     Dates: start: 201304
  2. MIDODRINE [Concomitant]
     Indication: PRODUCT USED FOR UNKNOWN INDICATION
     Dosage: QD (WITH EVENING MEAL)
     Route: 065

REACTIONS (1)
  - Nausea [Unknown]
